FAERS Safety Report 21217212 (Version 1)
Quarter: 2022Q3

REPORT INFORMATION
  Report Type: Spontaneous
  Country: US (occurrence: None)
  Receive Date: 20220815
  Receipt Date: 20220815
  Transmission Date: 20221026
  Serious: No
  Sender: FDA-Public Use
  Company Number: None

PATIENT
  Age: 59 Year
  Sex: Female

DRUGS (1)
  1. DALFAMPRIDINE [Suspect]
     Active Substance: DALFAMPRIDINE
     Indication: Multiple sclerosis
     Dosage: 10 MG TWICE DAILY ORAL
     Route: 048
     Dates: start: 20220720, end: 20220724

REACTIONS (2)
  - Vomiting [None]
  - Migraine [None]

NARRATIVE: CASE EVENT DATE: 20220720
